FAERS Safety Report 19158707 (Version 1)
Quarter: 2021Q2

REPORT INFORMATION
  Report Type: Spontaneous
  Country: BR (occurrence: BR)
  Receive Date: 20210420
  Receipt Date: 20210420
  Transmission Date: 20210717
  Serious: Yes (Other)
  Sender: FDA-Public Use
  Company Number: BR-MACLEODS PHARMACEUTICALS US LTD-MAC2021030835

PATIENT

DRUGS (2)
  1. VERTEPORFIN [Suspect]
     Active Substance: VERTEPORFIN
     Indication: CHOROIDAL NEOVASCULARISATION
     Dosage: UNK
     Route: 065
  2. TRIAMCINOLONE ACETONIDE. [Suspect]
     Active Substance: TRIAMCINOLONE ACETONIDE
     Indication: CHOROIDAL NEOVASCULARISATION
     Dosage: 4 MILLIGRAM, INJECTION

REACTIONS (2)
  - Eye infection toxoplasmal [Recovered/Resolved]
  - Choroiditis [Recovered/Resolved]
